FAERS Safety Report 21416243 (Version 1)
Quarter: 2022Q4

REPORT INFORMATION
  Report Type: Spontaneous
  Country: US (occurrence: US)
  Receive Date: 20221006
  Receipt Date: 20221006
  Transmission Date: 20230113
  Serious: No
  Sender: FDA-Public Use
  Company Number: US-SA-SAC20220929001648

PATIENT
  Sex: Female

DRUGS (1)
  1. DUPIXENT [Suspect]
     Active Substance: DUPILUMAB
     Indication: Dermatitis atopic
     Dosage: UNK
     Route: 058

REACTIONS (8)
  - Fatigue [Unknown]
  - Corneal abrasion [Recovering/Resolving]
  - Arthralgia [Unknown]
  - Gait disturbance [Unknown]
  - Dry eye [Unknown]
  - Dermatitis atopic [Unknown]
  - Rash [Unknown]
  - Therapeutic response shortened [Unknown]
